FAERS Safety Report 13908952 (Version 1)
Quarter: 2017Q3

REPORT INFORMATION
  Report Type: Report from Study
  Country: US (occurrence: US)
  Receive Date: 20170828
  Receipt Date: 20170828
  Transmission Date: 20171127
  Serious: No
  Sender: FDA-Public Use
  Company Number: PHEH2017US026223

PATIENT
  Age: 36 Year
  Sex: Male

DRUGS (2)
  1. COSENTYX [Suspect]
     Active Substance: SECUKINUMAB
     Indication: PRODUCT USED FOR UNKNOWN INDICATION
     Dosage: 300 MG, QMO (Q4WEEKS)
     Route: 058
     Dates: start: 20170615
  2. COSENTYX [Suspect]
     Active Substance: SECUKINUMAB
     Dosage: 300 MG, QMO (Q4WEEKS)
     Route: 058
     Dates: start: 20170810

REACTIONS (7)
  - Hepatic pain [Unknown]
  - Cholelithiasis [Unknown]
  - Injection site bruising [Unknown]
  - Gallbladder pain [Unknown]
  - Hepatic enzyme increased [Unknown]
  - Chills [Unknown]
  - Injection site mass [Recovered/Resolved]

NARRATIVE: CASE EVENT DATE: 20170810
